FAERS Safety Report 14517332 (Version 4)
Quarter: 2018Q1

REPORT INFORMATION
  Report Type: Report from Study
  Country: US (occurrence: US)
  Receive Date: 20180212
  Receipt Date: 20180301
  Transmission Date: 20180509
  Serious: Yes (Hospitalization)
  Sender: FDA-Public Use
  Company Number: US-GILEAD-2018-0320201

PATIENT
  Age: 46 Year
  Sex: Female

DRUGS (27)
  1. ADVAIR HFA [Concomitant]
     Active Substance: FLUTICASONE PROPIONATE\SALMETEROL XINAFOATE
  2. BUMETANIDE. [Concomitant]
     Active Substance: BUMETANIDE
  3. MORPHINE SULFATE. [Concomitant]
     Active Substance: MORPHINE SULFATE
  4. CALCIFEROL [Concomitant]
     Active Substance: ERGOCALCIFEROL
  5. FUROSEMIDE. [Concomitant]
     Active Substance: FUROSEMIDE
  6. KINERET [Concomitant]
     Active Substance: ANAKINRA
  7. PENNSAID [Concomitant]
     Active Substance: DICLOFENAC SODIUM
  8. SILDENAFIL CITRATE. [Concomitant]
     Active Substance: SILDENAFIL CITRATE
  9. IPRATROPIUM/ALBUTEROL [Concomitant]
     Active Substance: ALBUTEROL\IPRATROPIUM
  10. ZOLOFT [Concomitant]
     Active Substance: SERTRALINE HYDROCHLORIDE
  11. DEXILANT [Concomitant]
     Active Substance: DEXLANSOPRAZOLE
  12. GELUSIL                            /00066101/ [Concomitant]
  13. HCTZ [Concomitant]
     Active Substance: HYDROCHLOROTHIAZIDE
  14. MUCINEX [Concomitant]
     Active Substance: GUAIFENESIN
  15. MUPIROCIN. [Concomitant]
     Active Substance: MUPIROCIN
  16. MYRBETRIQ [Concomitant]
     Active Substance: MIRABEGRON
  17. NEURONTIN [Concomitant]
     Active Substance: GABAPENTIN
  18. AMBRISENTAN [Suspect]
     Active Substance: AMBRISENTAN
     Indication: ESSENTIAL HYPERTENSION
     Dosage: 10 MG, QD
     Route: 065
     Dates: start: 20130821
  19. AMBRISENTAN [Suspect]
     Active Substance: AMBRISENTAN
     Dosage: 5 MG, UNK
     Route: 065
  20. PROAIR HFA [Concomitant]
     Active Substance: ALBUTEROL SULFATE
  21. SUCRALFATE. [Concomitant]
     Active Substance: SUCRALFATE
  22. TRIAMINIC                          /00014501/ [Concomitant]
     Active Substance: CHLORPHENIRAMINE MALEATE\PHENYLPROPANOLAMINE HYDROCHLORIDE
  23. MIRALAX [Concomitant]
     Active Substance: POLYETHYLENE GLYCOL 3350
  24. SINGULAIR [Concomitant]
     Active Substance: MONTELUKAST SODIUM
  25. XARELTO [Concomitant]
     Active Substance: RIVAROXABAN
  26. AZELASTINE. [Concomitant]
     Active Substance: AZELASTINE HYDROCHLORIDE
  27. TOVIAZ [Concomitant]
     Active Substance: FESOTERODINE FUMARATE

REACTIONS (5)
  - Influenza like illness [Unknown]
  - Diarrhoea [Unknown]
  - Bradycardia [Unknown]
  - Vomiting [Unknown]
  - Abscess [Unknown]
